FAERS Safety Report 4347303-7 (Version None)
Quarter: 2004Q2

REPORT INFORMATION
  Report Type: 
  Country: None (occurrence: None)
  Receive Date: 20040426
  Receipt Date: 20040426
  Transmission Date: 20050107
  Serious: No
  Sender: FDA-Public Use
  Company Number: None

PATIENT
  Age: 54 Year
  Sex: Male
  Weight: 113.3993 kg

DRUGS (1)
  1. ROBAXIN [Suspect]
     Indication: BACK PAIN
     Dosage: 750 MG 2 TABELETS 3 TIMES DAILY

REACTIONS (4)
  - ASTHENIA [None]
  - DYSPNOEA [None]
  - MUSCULAR WEAKNESS [None]
  - RASH [None]
